FAERS Safety Report 5803434-3 (Version None)
Quarter: 2008Q2

REPORT INFORMATION
  Report Type: 
  Country: None (occurrence: None)
  Receive Date: 20080627
  Receipt Date: 20080207
  Transmission Date: 20081010
  Serious: Yes (Other)
  Sender: FDA-Public Use
  Company Number: 45079

PATIENT
  Sex: Male
  Weight: 70 kg

DRUGS (1)
  1. VECURONIUM BROMIDE [Suspect]
     Indication: ENDOTRACHEAL INTUBATION
     Dosage: 4MG FOR IV INTUBATION FOLLOWED BY 2RR
     Route: 042

REACTIONS (1)
  - DRUG INEFFECTIVE [None]
